FAERS Safety Report 7868936-7 (Version None)
Quarter: 2011Q4

REPORT INFORMATION
  Report Type: 
  Country: None (occurrence: None)
  Receive Date: 20111026
  Receipt Date: 20111026
  Transmission Date: 20120403
  Serious: No
  Sender: FDA-Public Use
  Company Number: None

PATIENT
  Age: 57 Year
  Sex: Male
  Weight: 96.4 kg

DRUGS (1)
  1. CARBIDOPA AND LEVODOPA [Suspect]
     Dosage: 2 MG, AT BEDTIME, PO
     Route: 048
     Dates: start: 20100506, end: 20101207

REACTIONS (2)
  - CRYING [None]
  - MOOD SWINGS [None]
